FAERS Safety Report 17459000 (Version 1)
Quarter: 2020Q1

REPORT INFORMATION
  Report Type: Spontaneous
  Country: US (occurrence: US)
  Receive Date: 20200212
  Receipt Date: 20200212
  Transmission Date: 20200409
  Serious: Yes (Death)
  Sender: FDA-Public Use
  Company Number: None

PATIENT
  Age: 87 Year
  Sex: Male

DRUGS (1)
  1. REVLIMID [Suspect]
     Active Substance: LENALIDOMIDE
     Indication: PLASMA CELL MYELOMA
     Route: 048
     Dates: start: 20160318, end: 20160607

REACTIONS (7)
  - Asthenia [None]
  - Confusional state [None]
  - Apnoea [None]
  - Anaemia [None]
  - Fatigue [None]
  - Drug intolerance [None]
  - Respiratory failure [None]

NARRATIVE: CASE EVENT DATE: 20160607
